FAERS Safety Report 26041491 (Version 2)
Quarter: 2025Q4

REPORT INFORMATION
  Report Type: Spontaneous
  Country: US (occurrence: US)
  Receive Date: 20251113
  Receipt Date: 20251120
  Transmission Date: 20260118
  Serious: No
  Sender: VERTEX
  Company Number: US-VERTEX PHARMACEUTICALS-2025-018987

PATIENT
  Age: 21 Year
  Sex: Female

DRUGS (1)
  1. TRIKAFTA [Suspect]
     Active Substance: ELEXACAFTOR\IVACAFTOR\TEZACAFTOR
     Indication: Cystic fibrosis
     Dosage: UNKNOWN DOSAGE REGIMEN
     Route: 048

REACTIONS (7)
  - Postural orthostatic tachycardia syndrome [Unknown]
  - Granuloma [Unknown]
  - Productive cough [Unknown]
  - Staphylococcus test positive [Unknown]
  - Bordetella test positive [Unknown]
  - Fungal test positive [Unknown]
  - Rales [Unknown]

NARRATIVE: CASE EVENT DATE: 20250101
